FAERS Safety Report 7334645-6 (Version None)
Quarter: 2011Q1

REPORT INFORMATION
  Report Type: 
  Country: None (occurrence: None)
  Receive Date: 20110307
  Receipt Date: 20110301
  Transmission Date: 20110831
  Serious: Yes (Other)
  Sender: FDA-Public Use
  Company Number: US-PFIZER INC-2011044882

PATIENT
  Sex: Female
  Weight: 50.794 kg

DRUGS (3)
  1. ZYVOX [Suspect]
     Indication: ARTHROPOD BITE
     Dosage: 600 MG, DAILY
     Route: 048
     Dates: start: 20110210, end: 20110210
  2. HYDROCHLOROTHIAZIDE [Concomitant]
     Dosage: UNK
  3. LEVOXYL [Concomitant]
     Indication: HYPOTHYROIDISM
     Dosage: UNK

REACTIONS (3)
  - DYSSTASIA [None]
  - LOSS OF CONSCIOUSNESS [None]
  - THINKING ABNORMAL [None]
